FAERS Safety Report 6165891-5 (Version None)
Quarter: 2009Q2

REPORT INFORMATION
  Report Type: 
  Country: None (occurrence: None)
  Receive Date: 20090423
  Receipt Date: 20090413
  Transmission Date: 20091009
  Serious: Yes (Life-Threatening, Hospitalization)
  Sender: FDA-Public Use
  Company Number: US-GILEAD-2009-0021037

PATIENT
  Age: 62 Year
  Sex: Female
  Weight: 77.18 kg

DRUGS (2)
  1. VIREAD [Suspect]
     Indication: PROPHYLAXIS
     Route: 048
     Dates: start: 20090306, end: 20090319
  2. PREDNISONE [Concomitant]
     Indication: AUTOIMMUNE HEPATITIS
     Route: 048

REACTIONS (2)
  - COMA HEPATIC [None]
  - RENAL FAILURE [None]
